FAERS Safety Report 21792488 (Version 1)
Quarter: 2022Q4

REPORT INFORMATION
  Report Type: Spontaneous
  Country: US (occurrence: US)
  Receive Date: 20221229
  Receipt Date: 20221229
  Transmission Date: 20230113
  Serious: No
  Sender: FDA-Public Use
  Company Number: ENDG22-07283

PATIENT
  Sex: Male

DRUGS (4)
  1. ADRENALIN [Suspect]
     Active Substance: EPINEPHRINE
     Indication: Allergy to arthropod sting
     Dosage: UNK UNKNOWN, UNKNOWN
     Route: 065
  2. ADRENALIN [Suspect]
     Active Substance: EPINEPHRINE
     Dosage: UNK UNKNOWN, UNKNOWN
     Route: 065
  3. ADRENALIN [Suspect]
     Active Substance: EPINEPHRINE
     Dosage: UNK UNKNOWN, UNKNOWN
     Route: 042
  4. METOPROLOL [Concomitant]
     Active Substance: METOPROLOL
     Indication: Blood pressure abnormal
     Dosage: 100 MG, BID
     Route: 065

REACTIONS (2)
  - Altered state of consciousness [Unknown]
  - Off label use [Unknown]
